FAERS Safety Report 18058160 (Version 1)
Quarter: 2020Q3

REPORT INFORMATION
  Report Type: Spontaneous
  Country: US (occurrence: US)
  Receive Date: 20200723
  Receipt Date: 20200723
  Transmission Date: 20201103
  Serious: No
  Sender: FDA-Public Use
  Company Number: US-ELI_LILLY_AND_COMPANY-US202007005437

PATIENT
  Sex: Male

DRUGS (2)
  1. HUMALOG [Suspect]
     Active Substance: INSULIN LISPRO
     Indication: TYPE 1 DIABETES MELLITUS
     Dosage: 1 U, PRN
     Route: 065
     Dates: start: 2005
  2. HUMALOG [Suspect]
     Active Substance: INSULIN LISPRO
     Dosage: 1 U, PRN
     Route: 065
     Dates: start: 2005

REACTIONS (1)
  - Blood glucose increased [Recovered/Resolved]
